FAERS Safety Report 10983277 (Version 1)
Quarter: 2015Q2

REPORT INFORMATION
  Report Type: Spontaneous
  Country: US (occurrence: None)
  Receive Date: 20150402
  Receipt Date: 20150402
  Transmission Date: 20150821
  Serious: No
  Sender: FDA-Public Use
  Company Number: None

PATIENT
  Age: 79 Year
  Sex: Male
  Weight: 94 kg

DRUGS (28)
  1. WARFARIN [Suspect]
     Active Substance: WARFARIN
     Indication: ATRIAL FIBRILLATION
     Route: 048
  2. HYDROCODONE-ACETAMINOPHEN (NORCO) [Concomitant]
  3. ESCITALOPRAM (LEXAPRO) [Concomitant]
  4. TYLENOL [Concomitant]
     Active Substance: ACETAMINOPHEN
  5. OMEPRAZOLE (PRILOSEC OTC) [Concomitant]
  6. PHENYTOIN (DILANTIN) [Concomitant]
  7. FERROUS SULFATE [Concomitant]
     Active Substance: FERROUS SULFATE\FERROUS SULFATE, DRIED
  8. SODIUM POLYSTYRENE SULFONATE (SPS, KAYEXALATE) [Concomitant]
  9. FOLIC ACID (FOLATE) [Concomitant]
  10. SENNA [Concomitant]
     Active Substance: SENNA LEAF\SENNOSIDES\SENNOSIDES A AND B
  11. ATORVASTATIN [Concomitant]
     Active Substance: ATORVASTATIN
  12. AMLODIPINE [Concomitant]
     Active Substance: AMLODIPINE BESYLATE
  13. FUROSEMIDE. [Concomitant]
     Active Substance: FUROSEMIDE
  14. TOLTERODINE (DETROL LA) [Concomitant]
  15. POLYETHYLENE GLYCOL (MIRALAX) [Concomitant]
  16. SKIN PROTECTANTYS (CALAZIME SKIN PROTECTANT) [Concomitant]
  17. CHOLECALCIFEROL [Concomitant]
     Active Substance: CHOLECALCIFEROL
  18. GEMFIBROZIL. [Concomitant]
     Active Substance: GEMFIBROZIL
  19. ASPIRIN 81 MG [Suspect]
     Active Substance: ASPIRIN
     Indication: CORONARY ARTERY DISEASE
     Route: 048
  20. NYSTATIN (MYCOSTATIN) [Concomitant]
  21. MYLANTA [Concomitant]
     Active Substance: ALUMINUM HYDROXIDE\MAGNESIUM HYDROXIDE\SIMETHICONE
  22. GABAPENTIN (NEURONTIN ) [Concomitant]
  23. OMEGA-3 FATTY ACID [Concomitant]
     Active Substance: OMEGA-3 FATTY ACIDS
  24. NITRO-DUR [Concomitant]
     Active Substance: NITROGLYCERIN
  25. GUAIFENESIN. [Concomitant]
     Active Substance: GUAIFENESIN
  26. CLONAZEPAM (KLONOPIN) [Concomitant]
  27. LABETALOL [Concomitant]
     Active Substance: LABETALOL\LABETALOL HYDROCHLORIDE
  28. MULTIVITAMIN [Concomitant]
     Active Substance: VITAMINS

REACTIONS (3)
  - Faeces discoloured [None]
  - Fatigue [None]
  - Asthenia [None]

NARRATIVE: CASE EVENT DATE: 20141215
